FAERS Safety Report 4378004-7 (Version None)
Quarter: 2004Q2

REPORT INFORMATION
  Report Type: 
  Country: None (occurrence: None)
  Receive Date: 20040608
  Receipt Date: 20040601
  Transmission Date: 20050107
  Serious: Yes (Death, Hospitalization)
  Sender: FDA-Public Use
  Company Number: STA-AE-04-MTX-244

PATIENT
  Age: 79 Year
  Sex: Female

DRUGS (4)
  1. METHOTREXATE [Suspect]
     Indication: MULTIPLE MYELOMA
     Dosage: 15 MG 1Z PER 1 DAY, ORAL
     Route: 048
     Dates: start: 20040427, end: 20040427
  2. NOLVADEX [Concomitant]
  3. PANTORC (PANTOPRAZOLE SODIUM) [Concomitant]
  4. ALLOPURINOL [Concomitant]

REACTIONS (6)
  - ABDOMINAL PAIN [None]
  - DIARRHOEA [None]
  - LOCALISED EXFOLIATION [None]
  - MOUTH HAEMORRHAGE [None]
  - MOUTH ULCERATION [None]
  - VOMITING [None]
